FAERS Safety Report 8305707-1 (Version None)
Quarter: 2012Q2

REPORT INFORMATION
  Report Type: 
  Country: None (occurrence: None)
  Receive Date: 20120423
  Receipt Date: 20120413
  Transmission Date: 20120825
  Serious: Yes (Disabling)
  Sender: FDA-Public Use
  Company Number: JP-ELI_LILLY_AND_COMPANY-JP201203001242

PATIENT
  Age: 70 Year
  Sex: Female

DRUGS (10)
  1. LOXONIN [Concomitant]
     Dosage: UNK, PRN
     Route: 048
  2. NORVASC [Concomitant]
     Route: 048
  3. DIOVAN [Concomitant]
     Route: 048
  4. ALINAMIN F [Concomitant]
     Route: 048
  5. MUCOSTA [Concomitant]
     Dosage: UNK, PRN
     Route: 048
  6. VITAMIN B12 [Concomitant]
  7. VALSARTAN/HYDROCHLOORTHIAZIDE [Concomitant]
     Route: 048
  8. EVISTA [Suspect]
     Dosage: 60 MG, EACH MORNING
     Route: 048
     Dates: start: 20120201
  9. RIZABEN [Concomitant]
     Route: 048
  10. KETOPROFEN [Concomitant]
     Route: 062

REACTIONS (1)
  - ALOPECIA [None]
